FAERS Safety Report 11149927 (Version 3)
Quarter: 2015Q3

REPORT INFORMATION
  Report Type: Spontaneous
  Country: US (occurrence: US)
  Receive Date: 20150529
  Receipt Date: 20150707
  Transmission Date: 20151125
  Serious: Yes (Other)
  Sender: FDA-Public Use
  Company Number: US-PERRIGO-15US005210

PATIENT
  Age: 17 Year
  Sex: Male
  Weight: 72.56 kg

DRUGS (4)
  1. UNSPECIFIED PRESCRIBED ADHA MEDICATION [Concomitant]
     Indication: ATTENTION DEFICIT/HYPERACTIVITY DISORDER
     Dosage: UNK
     Route: 065
  2. SLEEPING PILLS [Concomitant]
     Active Substance: UNSPECIFIED INGREDIENT
     Indication: INSOMNIA
     Dosage: UNK
     Route: 048
     Dates: start: 2013
  3. NYSTATIN 100000 U/G 2K8 [Suspect]
     Active Substance: NYSTATIN
     Indication: FUNGAL SKIN INFECTION
     Dosage: UNK, QID
     Route: 061
     Dates: start: 201502, end: 2015
  4. NYSTATIN 100000 U/G 2K8 [Suspect]
     Active Substance: NYSTATIN
     Dosage: UNK, PRN
     Route: 065
     Dates: start: 20141030

REACTIONS (6)
  - Eye injury [Not Recovered/Not Resolved]
  - Ocular hyperaemia [Recovered/Resolved]
  - Rash [Recovered/Resolved]
  - Herpes virus infection [Recovered/Resolved]
  - Vision blurred [Not Recovered/Not Resolved]
  - Eye infection [Recovered/Resolved]

NARRATIVE: CASE EVENT DATE: 20141217
